FAERS Safety Report 11054905 (Version 2)
Quarter: 2015Q2

REPORT INFORMATION
  Report Type: Spontaneous
  Country: US (occurrence: US)
  Receive Date: 20150422
  Receipt Date: 20150522
  Transmission Date: 20150821
  Serious: No
  Sender: FDA-Public Use
  Company Number: US-009507513-1504USA003017

PATIENT
  Age: 26 Year
  Sex: Female
  Weight: 61.22 kg

DRUGS (1)
  1. NEXPLANON [Suspect]
     Active Substance: ETONOGESTREL
     Indication: CONTRACEPTION
     Dosage: 1 ROD FOR 2 YEARS
     Route: 059
     Dates: start: 201307, end: 20150403

REACTIONS (3)
  - Nausea [Not Recovered/Not Resolved]
  - Body temperature increased [Not Recovered/Not Resolved]
  - Headache [Not Recovered/Not Resolved]

NARRATIVE: CASE EVENT DATE: 20150404
